FAERS Safety Report 8542492-2 (Version None)
Quarter: 2012Q3

REPORT INFORMATION
  Report Type: 
  Country: None (occurrence: None)
  Receive Date: 20120726
  Receipt Date: 20120327
  Transmission Date: 20120928
  Serious: Yes (Hospitalization)
  Sender: FDA-Public Use
  Company Number: US-ASTRAZENECA-2010SE50661

PATIENT
  Age: 41 Year
  Sex: Female

DRUGS (5)
  1. SEROQUEL XR [Suspect]
     Route: 048
     Dates: start: 20090101
  2. SYNTHROID [Concomitant]
     Route: 065
  3. LITHIUM CARBONATE [Concomitant]
     Route: 065
  4. SEROQUEL XR [Suspect]
     Indication: BIPOLAR DISORDER
     Route: 048
  5. DEPAKOTE ER [Concomitant]
     Route: 065

REACTIONS (8)
  - MANIA [None]
  - FLATULENCE [None]
  - SEDATION [None]
  - DEPRESSION [None]
  - ABDOMINAL PAIN [None]
  - CONSTIPATION [None]
  - FATIGUE [None]
  - DRUG HYPERSENSITIVITY [None]
